FAERS Safety Report 9754076 (Version 1)
Quarter: 2013Q4

REPORT INFORMATION
  Report Type: Spontaneous
  Country: US (occurrence: US)
  Receive Date: 20131213
  Receipt Date: 20131213
  Transmission Date: 20140711
  Serious: No
  Sender: FDA-Public Use
  Company Number: US-GLAXOSMITHKLINE-A1016115A

PATIENT
  Age: 47 Year
  Sex: Female

DRUGS (2)
  1. NICORETTE NICOTINE POLACRILEX CHERRY LOZENGE, 4MG [Suspect]
     Indication: EX-TOBACCO USER
  2. CHANTIX [Concomitant]

REACTIONS (5)
  - Oral discomfort [Not Recovered/Not Resolved]
  - Mouth ulceration [Not Recovered/Not Resolved]
  - Stomatitis [Not Recovered/Not Resolved]
  - Swollen tongue [Not Recovered/Not Resolved]
  - Drug administration error [Unknown]
